FAERS Safety Report 23477947 (Version 1)
Quarter: 2024Q1

REPORT INFORMATION
  Report Type: Spontaneous
  Country: AE (occurrence: AE)
  Receive Date: 20240204
  Receipt Date: 20240204
  Transmission Date: 20240410
  Serious: Yes (Other)
  Sender: FDA-Public Use
  Company Number: AE-JNJFOC-20240165621

PATIENT
  Sex: Male

DRUGS (1)
  1. ERDAFITINIB [Suspect]
     Active Substance: ERDAFITINIB
     Indication: Glioma
     Route: 065

REACTIONS (2)
  - Pulmonary embolism [Unknown]
  - Off label use [Unknown]
